FAERS Safety Report 7688254-X (Version None)
Quarter: 2011Q3

REPORT INFORMATION
  Report Type: 
  Country: None (occurrence: None)
  Receive Date: 20110817
  Receipt Date: 20110808
  Transmission Date: 20111222
  Serious: Yes (Hospitalization)
  Sender: FDA-Public Use
  Company Number: FR-ASTRAZENECA-2011SE47636

PATIENT
  Age: 80 Year
  Sex: Female

DRUGS (3)
  1. EUPRESSYL [Concomitant]
     Indication: HYPERTENSION
     Dosage: DAILY
     Route: 048
  2. ATACAND [Suspect]
     Indication: HYPERTENSION
     Dosage: DAILY
     Route: 048
     Dates: end: 20110401
  3. ESCITALOPRAM OXALATE [Interacting]
     Indication: DEPRESSION
     Dosage: DAILY
     Route: 048
     Dates: start: 20110329, end: 20110401

REACTIONS (3)
  - DRUG INTERACTION [None]
  - HYPONATRAEMIA [None]
  - INAPPROPRIATE ANTIDIURETIC HORMONE SECRETION [None]
